FAERS Safety Report 6760398-6 (Version None)
Quarter: 2010Q2

REPORT INFORMATION
  Report Type: 
  Country: None (occurrence: None)
  Receive Date: 20100608
  Receipt Date: 20100525
  Transmission Date: 20101027
  Serious: Yes (Hospitalization)
  Sender: FDA-Public Use
  Company Number: DE-WATSON-2010-06262

PATIENT

DRUGS (3)
  1. RAMIPRIL [Suspect]
     Indication: HYPERTENSION
     Dosage: 5 MG, UNK
     Route: 048
     Dates: start: 20090101
  2. COLCHYSAT                          /01647902/ [Concomitant]
     Indication: GOUTY ARTHRITIS
     Dosage: 0.5 MG, UNK
     Route: 048
     Dates: start: 20090807, end: 20090808
  3. AMLODIPIN                          /00972401/ [Concomitant]
     Indication: HYPERTENSION
     Dosage: 5 MG, UNK
     Route: 048
     Dates: start: 20090401

REACTIONS (1)
  - DERMATOMYOSITIS [None]
